FAERS Safety Report 9518609 (Version 1)
Quarter: 2013Q3

REPORT INFORMATION
  Report Type: Spontaneous
  Country: BR (occurrence: BR)
  Receive Date: 20130912
  Receipt Date: 20130912
  Transmission Date: 20140515
  Serious: Yes (Other)
  Sender: FDA-Public Use
  Company Number: PHHY2013BR099647

PATIENT
  Age: 13 Year
  Sex: Male

DRUGS (1)
  1. RITALIN LA [Suspect]
     Dosage: UNK UKN, UNK

REACTIONS (4)
  - Upper limb fracture [Unknown]
  - Fall [Unknown]
  - Performance status decreased [Unknown]
  - Abnormal behaviour [Unknown]
